FAERS Safety Report 5142931-3 (Version None)
Quarter: 2006Q4

REPORT INFORMATION
  Report Type: 
  Country: None (occurrence: None)
  Receive Date: 20061030
  Receipt Date: 20061012
  Transmission Date: 20070319
  Serious: Yes (Other)
  Sender: FDA-Public Use
  Company Number: 2006130047

PATIENT
  Age: 52 Year
  Sex: Male

DRUGS (2)
  1. NEURONTIN [Suspect]
     Indication: WHIPLASH INJURY
     Dosage: 1800 MG (600 MG, 3 IN 1 D), ORAL
     Route: 048
     Dates: start: 20031201, end: 20060911
  2. TAVONIN (GINKGO BILOBA) [Suspect]
     Dosage: ORAL
     Route: 048

REACTIONS (2)
  - DIZZINESS [None]
  - MULTIPLE SCLEROSIS [None]
